FAERS Safety Report 5588520-8 (Version None)
Quarter: 2008Q1

REPORT INFORMATION
  Report Type: 
  Country: None (occurrence: None)
  Receive Date: 20080111
  Receipt Date: 20080110
  Transmission Date: 20080703
  Serious: Yes (Death)
  Sender: FDA-Public Use
  Company Number: US-ASTRAZENECA-2008AC00108

PATIENT
  Age: 49 Year
  Sex: Male

DRUGS (9)
  1. LISINOPRIL [Suspect]
     Route: 048
  2. LISINOPRIL AND HYDROCHLOROTHIAZIDE [Suspect]
     Route: 048
  3. GABAPENTIN [Suspect]
     Route: 048
  4. LAMOTRIGINE [Suspect]
     Route: 048
  5. VENLAFAXINE HCL [Suspect]
     Route: 048
  6. TRAZODONE HCL [Suspect]
     Route: 048
  7. SILDENAFIL CITRATE [Suspect]
     Route: 048
  8. HYDROXYZINE [Suspect]
     Route: 048
  9. FUROSEMIDE [Suspect]
     Route: 048

REACTIONS (2)
  - CARDIO-RESPIRATORY ARREST [None]
  - COMPLETED SUICIDE [None]
